FAERS Safety Report 24981597 (Version 1)
Quarter: 2025Q1

REPORT INFORMATION
  Report Type: Spontaneous
  Country: US (occurrence: None)
  Receive Date: 20250217
  Receipt Date: 20250217
  Transmission Date: 20250408
  Serious: No
  Sender: FDA-CTU
  Company Number: None

PATIENT
  Age: 58 Year
  Sex: Female

DRUGS (1)
  1. PROGESTERONE [Suspect]
     Active Substance: PROGESTERONE
     Dosage: FREQUENCY : DAILY;?
     Route: 048
     Dates: start: 20241220, end: 20250215

REACTIONS (4)
  - Product dispensing error [None]
  - Muscle spasms [None]
  - Feeling abnormal [None]
  - Incorrect dose administered [None]

NARRATIVE: CASE EVENT DATE: 20250217
